FAERS Safety Report 14131293 (Version 1)
Quarter: 2017Q4

REPORT INFORMATION
  Report Type: Spontaneous
  Country: CA (occurrence: CA)
  Receive Date: 20171026
  Receipt Date: 20171026
  Transmission Date: 20180321
  Serious: Yes (Other)
  Sender: FDA-Public Use
  Company Number: CA-BAYER-2017-200875

PATIENT
  Age: 93 Year
  Sex: Female

DRUGS (3)
  1. ASPIRIN 325 MG [Suspect]
     Active Substance: ASPIRIN
     Indication: ARTHRITIS
     Dosage: 325 MG, QD
  2. EYLEA [Concomitant]
     Active Substance: AFLIBERCEPT
     Indication: NEOVASCULAR AGE-RELATED MACULAR DEGENERATION
     Dosage: UNK
  3. ASPIRIN 325 MG [Suspect]
     Active Substance: ASPIRIN
     Indication: ARTHRITIS
     Dosage: 2600 MG, (2600MG WITHIN A 12 HOUR SPAN)

REACTIONS (5)
  - Neovascular age-related macular degeneration [None]
  - Vomiting [Recovered/Resolved]
  - Dizziness [Recovered/Resolved]
  - Visual impairment [None]
  - Vision blurred [None]
